FAERS Safety Report 7069967-X (Version None)
Quarter: 2010Q4

REPORT INFORMATION
  Report Type: 
  Country: None (occurrence: None)
  Receive Date: 20101028
  Receipt Date: 20100721
  Transmission Date: 20110411
  Serious: No
  Sender: FDA-Public Use
  Company Number: US-WYE-H16492110

PATIENT
  Age: 42 Year
  Sex: Female
  Weight: 69.92 kg

DRUGS (2)
  1. ADVIL [Suspect]
     Indication: PAIN
     Route: 048
     Dates: start: 20100720, end: 20100720
  2. ADVIL [Suspect]
     Route: 048
     Dates: start: 20100721, end: 20100721

REACTIONS (4)
  - DRUG HYPERSENSITIVITY [None]
  - DRY SKIN [None]
  - SKIN DISCOLOURATION [None]
  - SKIN TIGHTNESS [None]
